FAERS Safety Report 17472788 (Version 1)
Quarter: 2020Q1

REPORT INFORMATION
  Report Type: Spontaneous
  Country: US (occurrence: US)
  Receive Date: 20200227
  Receipt Date: 20200227
  Transmission Date: 20200409
  Serious: Yes (Death)
  Sender: FDA-Public Use
  Company Number: None

PATIENT
  Age: 85 Year
  Sex: Female
  Weight: 70 kg

DRUGS (2)
  1. LEVOPHED [Suspect]
     Active Substance: NOREPINEPHRINE BITARTRATE
  2. CAREFUSION 8015 ALARIS PUMP [Suspect]
     Active Substance: DEVICE

REACTIONS (2)
  - Hypotension [None]
  - Device malfunction [None]

NARRATIVE: CASE EVENT DATE: 20200225
